FAERS Safety Report 24672947 (Version 1)
Quarter: 2024Q4

REPORT INFORMATION
  Report Type: Spontaneous
  Country: US (occurrence: US)
  Receive Date: 20241128
  Receipt Date: 20241128
  Transmission Date: 20250114
  Serious: Yes (Death, Other)
  Sender: QILU PHARMACEUTICAL
  Company Number: US-QILU PHARMACEUTICAL CO.LTD.-QLU-000355-2024

PATIENT
  Age: 10 Month
  Sex: Male

DRUGS (1)
  1. OLANZAPINE [Suspect]
     Active Substance: OLANZAPINE
     Indication: Delirium
     Dosage: UNK
     Route: 065

REACTIONS (4)
  - Multiple organ dysfunction syndrome [Fatal]
  - Neuroleptic malignant syndrome [Fatal]
  - Therapy non-responder [Unknown]
  - Off label use [Recovered/Resolved]
